FAERS Safety Report 24157736 (Version 1)
Quarter: 2024Q3

REPORT INFORMATION
  Report Type: Spontaneous
  Country: US (occurrence: None)
  Receive Date: 20240731
  Receipt Date: 20240731
  Transmission Date: 20241017
  Serious: Yes (Hospitalization)
  Sender: Public
  Company Number: None

PATIENT
  Sex: Female

DRUGS (2)
  1. HUMIRA [Suspect]
     Active Substance: ADALIMUMAB
     Indication: Rheumatoid arthritis
     Dosage: 40MG EVERY 14 DAYS UNDER THE SKIN
     Route: 042
     Dates: start: 202406
  2. ENBREL SURECLICK PF AUTOINJ [Concomitant]

REACTIONS (3)
  - Urticaria [None]
  - Circumoral swelling [None]
  - Injection related reaction [None]
